FAERS Safety Report 13103305 (Version 1)
Quarter: 2017Q1

REPORT INFORMATION
  Report Type: Report from Study
  Country: MX (occurrence: MX)
  Receive Date: 20170110
  Receipt Date: 20170110
  Transmission Date: 20170428
  Serious: Yes (Hospitalization)
  Sender: FDA-Public Use
  Company Number: PHHY2016MX163342

PATIENT
  Age: 67 Year
  Sex: Female
  Weight: 43 kg

DRUGS (4)
  1. GALVUS MET [Suspect]
     Active Substance: METFORMIN HYDROCHLORIDE\VILDAGLIPTIN
     Dosage: 3 DF, QD (METFORMIN 850 MG/VILDAGLIPTIN 50 MG
     Route: 048
  2. METOPROLOL. [Concomitant]
     Active Substance: METOPROLOL
     Indication: BLOOD PRESSURE INCREASED
     Dosage: 1 DF, Q8H
     Route: 048
     Dates: start: 2001, end: 201608
  3. GALVUS MET [Suspect]
     Active Substance: METFORMIN HYDROCHLORIDE\VILDAGLIPTIN
     Indication: TYPE 2 DIABETES MELLITUS
     Dosage: 1 DF, Q12H (METFORMIN 850 MG/VILDAGLIPTIN 50 MG
     Route: 065
  4. LEVOFLOXACIN. [Suspect]
     Active Substance: LEVOFLOXACIN
     Indication: INFLUENZA
     Dosage: 500 MG, Q8H (1 TABLET)
     Route: 048
     Dates: end: 20161127

REACTIONS (7)
  - Concomitant disease aggravated [Recovering/Resolving]
  - Gastritis [Recovering/Resolving]
  - Blood pressure increased [Recovering/Resolving]
  - Prescribed overdose [Not Recovered/Not Resolved]
  - Appendicitis [Unknown]
  - Blood glucose increased [Recovered/Resolved]
  - Influenza [Recovered/Resolved]

NARRATIVE: CASE EVENT DATE: 20161123
